FAERS Safety Report 9712674 (Version 1)
Quarter: 2013Q4

REPORT INFORMATION
  Report Type: Spontaneous
  Country: US (occurrence: US)
  Receive Date: 20131126
  Receipt Date: 20131126
  Transmission Date: 20140711
  Serious: No
  Sender: FDA-Public Use
  Company Number: US-BRISTOL-MYERS SQUIBB COMPANY-18896340

PATIENT
  Age: 55 Year
  Sex: Male
  Weight: 108.84 kg

DRUGS (5)
  1. BYDUREON [Suspect]
     Indication: TYPE 2 DIABETES MELLITUS
     Route: 058
     Dates: start: 20130423
  2. METFORMIN [Concomitant]
  3. LANTUS [Concomitant]
     Dosage: DOSE REDUCED FROM 70UNITS TO 45 UNITS
  4. INSULIN [Concomitant]
     Dosage: DOSE REDUCED FROM 70UNITS TO 45 UNITS
  5. ASPIRIN [Concomitant]

REACTIONS (2)
  - Diarrhoea [Recovering/Resolving]
  - Abdominal pain [Recovering/Resolving]
